FAERS Safety Report 6340757-6 (Version None)
Quarter: 2009Q3

REPORT INFORMATION
  Report Type: 
  Country: None (occurrence: None)
  Receive Date: 20090904
  Receipt Date: 20090901
  Transmission Date: 20100115
  Serious: Yes (Hospitalization)
  Sender: FDA-Public Use
  Company Number: US-BRISTOL-MYERS SQUIBB COMPANY-14764328

PATIENT
  Age: 83 Year
  Sex: Female

DRUGS (16)
  1. CETUXIMAB [Suspect]
     Indication: ENDOMETRIAL CANCER RECURRENT
     Dosage: ALSO TAKEN ON 04MAY,11MAY,18MAY,01JUN,09JUN,16JUN,06JUL,13JUL,20JUL,27JUL,17AUG09.TOTAL CYC:3
     Route: 042
     Dates: start: 20090427
  2. ARTIFICIAL TEARS [Concomitant]
     Route: 047
  3. ASPIRIN [Concomitant]
     Dosage: ASPIRIN -ENTERIC COATED BED TIME
     Route: 048
  4. CALAMINE [Concomitant]
     Indication: WOUND TREATMENT
     Dosage: 1 DF-THIN LAYER AS NEEDED CALAMINE PHENOLATED OINTMENT
     Route: 061
  5. CIPRO [Concomitant]
     Indication: URINARY TRACT INFECTION
     Route: 048
  6. COSOPT [Concomitant]
     Dosage: 1DF=1 GTTS
     Route: 047
  7. FOSAMAX [Concomitant]
     Indication: OSTEOPOROSIS
     Route: 048
  8. GABAPENTIN [Concomitant]
     Indication: NEURALGIA
     Dosage: STRENGTH:100 MG 1DF-2 CAPS BED TIME
     Route: 048
  9. LISINOPRIL [Concomitant]
     Indication: BLOOD PRESSURE
     Route: 048
  10. CLARITIN [Concomitant]
     Indication: PRURITUS
     Route: 048
  11. LUMIGAN [Concomitant]
     Indication: GLAUCOMA
     Dosage: STRENGTH:0.03% BED TIME 1 DROP IN EACH EYE
     Route: 047
  12. METFORMIN HCL [Concomitant]
     Indication: DIABETES MELLITUS
     Route: 048
  13. MORPHINE [Concomitant]
     Indication: PAIN
     Dosage: 1DF=1 TAB MORPHINE  EXTENDED RELEASE STRENGTH:15 MG
     Route: 048
  14. MULTI-VITAMIN [Concomitant]
     Indication: VITAMIN SUPPLEMENTATION
     Dosage: 1 DF=1 TAB
     Route: 048
  15. PROTONIX [Concomitant]
     Indication: ULCER
     Route: 048
  16. CRESTOR [Concomitant]
     Indication: BLOOD CHOLESTEROL ABNORMAL
     Dosage: AT BED TIME
     Route: 048

REACTIONS (2)
  - DIARRHOEA [None]
  - HAEMATOCHEZIA [None]
